FAERS Safety Report 17638765 (Version 1)
Quarter: 2020Q2

REPORT INFORMATION
  Report Type: Spontaneous
  Country: US (occurrence: US)
  Receive Date: 20200407
  Receipt Date: 20200407
  Transmission Date: 20200713
  Serious: Yes (Other)
  Sender: FDA-Public Use
  Company Number: US-MSNLABS-2020MSNSPO00051

PATIENT

DRUGS (2)
  1. PREGABALIN CAPSULES 100 MG [Suspect]
     Active Substance: PREGABALIN
     Indication: FIBROMYALGIA
     Dosage: UNKNOWN
     Route: 065
  2. PREGABALIN CAPSULES 100 MG [Suspect]
     Active Substance: PREGABALIN
     Indication: NEURALGIA

REACTIONS (3)
  - Visual impairment [Unknown]
  - Balance disorder [Unknown]
  - Angioedema [Unknown]
